FAERS Safety Report 10566280 (Version 2)
Quarter: 2014Q4

REPORT INFORMATION
  Report Type: Report from Study
  Country: US (occurrence: US)
  Receive Date: 20141105
  Receipt Date: 20141105
  Transmission Date: 20150529
  Serious: Yes (Hospitalization, Other)
  Sender: FDA-Public Use
  Company Number: US-BAYER-2014-153716

PATIENT
  Age: 55 Year
  Sex: Female

DRUGS (2)
  1. STIVARGA [Suspect]
     Active Substance: REGORAFENIB
     Indication: GASTRIC CANCER
  2. STIVARGA [Suspect]
     Active Substance: REGORAFENIB
     Indication: COLORECTAL CANCER
     Dosage: DAILY DOSE 120 MG
     Route: 048
     Dates: start: 20141010, end: 20141024

REACTIONS (6)
  - Asthenia [None]
  - Abdominal pain [None]
  - Vomiting [None]
  - Headache [None]
  - Hypotension [None]
  - Decreased appetite [None]

NARRATIVE: CASE EVENT DATE: 20141010
